FAERS Safety Report 9987949 (Version 2)
Quarter: 2014Q1

REPORT INFORMATION
  Report Type: Spontaneous
  Country: US (occurrence: US)
  Receive Date: 20140307
  Receipt Date: 20140328
  Transmission Date: 20141002
  Serious: Yes (Hospitalization)
  Sender: FDA-Public Use
  Company Number: US-PFIZER INC-2014061927

PATIENT
  Age: 78 Year
  Sex: Female
  Weight: 128.35 kg

DRUGS (1)
  1. XALATAN [Suspect]
     Indication: GLAUCOMA
     Dosage: UNK
     Dates: start: 2011

REACTIONS (1)
  - Arthropathy [Recovering/Resolving]
